FAERS Safety Report 13846035 (Version 1)
Quarter: 2017Q3

REPORT INFORMATION
  Report Type: Spontaneous
  Country: US (occurrence: US)
  Receive Date: 20170808
  Receipt Date: 20170808
  Transmission Date: 20171127
  Serious: No
  Sender: FDA-Public Use
  Company Number: US-ROCHE-568370

PATIENT
  Sex: Female

DRUGS (1)
  1. BONIVA [Suspect]
     Active Substance: IBANDRONATE SODIUM
     Indication: OSTEOPOROSIS
     Route: 048

REACTIONS (6)
  - Dyspnoea [Unknown]
  - Odynophagia [Unknown]
  - Painful respiration [Unknown]
  - Abdominal pain [Unknown]
  - Chest pain [Unknown]
  - Dyspepsia [Unknown]
